FAERS Safety Report 5664746-X (Version None)
Quarter: 2008Q1

REPORT INFORMATION
  Report Type: 
  Country: None (occurrence: None)
  Receive Date: 20080314
  Receipt Date: 20080310
  Transmission Date: 20080703
  Serious: Yes (Hospitalization)
  Sender: FDA-Public Use
  Company Number: AU-ASTRAZENECA-2008AP01751

PATIENT
  Age: 61 Year
  Sex: Male

DRUGS (4)
  1. CRESTOR [Suspect]
     Dosage: 15 TABLETS
     Route: 048
  2. LIPIDIL [Suspect]
     Dosage: 24 TABLETS
     Route: 048
  3. PARACETAMOL [Suspect]
     Dosage: 15 TABLETS
     Route: 048
  4. NUROFEN [Suspect]
     Dosage: 12 TABLETS
     Route: 048

REACTIONS (4)
  - BLOOD CREATINE PHOSPHOKINASE INCREASED [None]
  - GAMMA-GLUTAMYLTRANSFERASE INCREASED [None]
  - OVERDOSE [None]
  - RENAL IMPAIRMENT [None]
